FAERS Safety Report 20255510 (Version 1)
Quarter: 2021Q4

REPORT INFORMATION
  Report Type: Spontaneous
  Country: DE (occurrence: DE)
  Receive Date: 20211230
  Receipt Date: 20211230
  Transmission Date: 20220303
  Serious: Yes (Hospitalization)
  Sender: FDA-Public Use
  Company Number: DE-ADRED-07479-01

PATIENT
  Age: 55 Year
  Sex: Male
  Weight: 97 kg

DRUGS (4)
  1. METHOTREXATE [Suspect]
     Active Substance: METHOTREXATE
     Dosage: PAUSED
     Route: 065
  2. FOLIC ACID [Concomitant]
     Active Substance: FOLIC ACID
     Dosage: .4 MILLIGRAM DAILY; 0.4 MG, 1-0-0-0,
     Route: 048
  3. IBUPROFEN [Concomitant]
     Active Substance: IBUPROFEN
     Dosage: 600 MG, REQUIREMENT,
     Route: 048
  4. Cyanocobalamin (Vitamin B12) [Concomitant]
     Dosage: 1 MG, ACCORDING TO THE SCHEME, AMPOULES
     Route: 058

REACTIONS (7)
  - Pain [Unknown]
  - Fatigue [Unknown]
  - Dysphagia [Unknown]
  - Nausea [Unknown]
  - General physical health deterioration [Unknown]
  - Dyspnoea [Unknown]
  - Headache [Unknown]
